FAERS Safety Report 25210487 (Version 1)
Quarter: 2025Q2

REPORT INFORMATION
  Report Type: Report from Study
  Country: US (occurrence: US)
  Receive Date: 20250417
  Receipt Date: 20250417
  Transmission Date: 20250716
  Serious: Yes (Other)
  Sender: PFIZER
  Company Number: US-PFIZER INC-PV202500043225

PATIENT
  Age: 56 Year
  Sex: Female

DRUGS (5)
  1. BRAFTOVI [Suspect]
     Active Substance: ENCORAFENIB
     Indication: Colon cancer
     Dosage: 300 MG ORALLY ONCE DAILY
     Route: 048
     Dates: start: 202009
  2. BRAFTOVI [Suspect]
     Active Substance: ENCORAFENIB
     Dosage: 225 MG, 1X/DAY
     Route: 048
     Dates: start: 202109
  3. BRAFTOVI [Suspect]
     Active Substance: ENCORAFENIB
     Dosage: 150 MG, DAILY
     Route: 048
     Dates: start: 2021
  4. BRAFTOVI [Suspect]
     Active Substance: ENCORAFENIB
     Dosage: 150 MG, 1X/DAY
     Route: 048
     Dates: start: 202303
  5. ERBITUX [Suspect]
     Active Substance: CETUXIMAB
     Dates: start: 202009

REACTIONS (16)
  - Skin cancer [Unknown]
  - Second primary malignancy [Unknown]
  - Neuropathy peripheral [Unknown]
  - Condition aggravated [Unknown]
  - Arthralgia [Unknown]
  - Diarrhoea [Not Recovered/Not Resolved]
  - Abdominal discomfort [Not Recovered/Not Resolved]
  - Fatigue [Not Recovered/Not Resolved]
  - Hot flush [Recovered/Resolved]
  - Alopecia [Recovered/Resolved]
  - Nausea [Unknown]
  - Taste disorder [Unknown]
  - Constipation [Recovering/Resolving]
  - Insomnia [Unknown]
  - Skin fissures [Recovering/Resolving]
  - Onychomalacia [Not Recovered/Not Resolved]

NARRATIVE: CASE EVENT DATE: 20240301
